FAERS Safety Report 23089361 (Version 1)
Quarter: 2023Q4

REPORT INFORMATION
  Report Type: Spontaneous
  Country: FR (occurrence: FR)
  Receive Date: 20231020
  Receipt Date: 20231020
  Transmission Date: 20240110
  Serious: Yes (Other)
  Sender: FDA-Public Use
  Company Number: FR-SAMIL-GLO2023FR006391

PATIENT
  Age: 8 Year
  Sex: Male

DRUGS (4)
  1. CARBOPLATIN [Suspect]
     Active Substance: CARBOPLATIN
     Indication: Retinoblastoma
     Dosage: 2 CYCLES
     Route: 042
     Dates: start: 2020, end: 2020
  2. ETOPOSIDE [Suspect]
     Active Substance: ETOPOSIDE
     Indication: Retinoblastoma
     Dosage: 2 CYCLES
     Route: 042
     Dates: start: 2020, end: 2020
  3. MELPHALAN [Suspect]
     Active Substance: MELPHALAN
     Indication: Retinoblastoma
     Dosage: 5 MG (COMBINED WITH TWO MONTHLY INTRA-ARTERIAL INJECTIONS)
     Route: 013
     Dates: start: 2020, end: 2020
  4. MELPHALAN [Suspect]
     Active Substance: MELPHALAN
     Dosage: 0.3 MG/ML (TOTAL OF 8 INJECTIONS)
     Dates: start: 2020, end: 2020

REACTIONS (4)
  - Iris atrophy [Unknown]
  - Iris discolouration [Unknown]
  - Off label use [Unknown]
  - Off label use [Unknown]

NARRATIVE: CASE EVENT DATE: 20200101
